FAERS Safety Report 9783433 (Version 1)
Quarter: 2013Q4

REPORT INFORMATION
  Report Type: Spontaneous
  Country: BR (occurrence: BR)
  Receive Date: 20131226
  Receipt Date: 20131226
  Transmission Date: 20140711
  Serious: Yes (Other)
  Sender: FDA-Public Use
  Company Number: BR-PFIZER INC-2013365988

PATIENT
  Sex: Male

DRUGS (2)
  1. FELDENE [Suspect]
     Indication: RHEUMATOID ARTHRITIS
  2. CORTISONE [Suspect]

REACTIONS (2)
  - Diabetes mellitus [Unknown]
  - Swelling [Unknown]
